FAERS Safety Report 16457998 (Version 1)
Quarter: 2019Q2

REPORT INFORMATION
  Report Type: Spontaneous
  Country: GB (occurrence: GB)
  Receive Date: 20190620
  Receipt Date: 20190620
  Transmission Date: 20190711
  Serious: Yes (Disabling)
  Sender: FDA-Public Use
  Company Number: GB-MYLANLABS-2019M1056876

PATIENT
  Age: 75 Year
  Sex: Female
  Weight: 79 kg

DRUGS (16)
  1. SOLIFENACIN [Concomitant]
     Active Substance: SOLIFENACIN
     Dosage: 1 DOSAGE FORM, QD
     Dates: start: 20180802, end: 20181217
  2. DENOSUMAB [Concomitant]
     Active Substance: DENOSUMAB
     Dosage: 1 DOSAGE FORM, 6 MONTH, GIVEN BY RHEUMATOLOGIST
     Dates: start: 20120926
  3. NITROFURANTOIN. [Concomitant]
     Active Substance: NITROFURANTOIN
     Dosage: 2 DOSAGE FORM, QD
     Dates: start: 20181213, end: 20181216
  4. INDORAMIN [Concomitant]
     Active Substance: INDORAMIN
     Dosage: FOR 2 WEEKS
     Dates: start: 20181217
  5. DICLOFENAC DIETHYLAMINE [Concomitant]
     Active Substance: DICLOFENAC DIETHYLAMINE
     Dosage: 3 DOSAGE FORM, QD
     Dates: start: 20180802
  6. DOXAZOSIN [Suspect]
     Active Substance: DOXAZOSIN\DOXAZOSIN MESYLATE
     Indication: PRODUCT USED FOR UNKNOWN INDICATION
     Dosage: 4 MILLIGRAM
     Route: 048
     Dates: start: 20180802
  7. COLECALCIFEROL [Concomitant]
     Active Substance: CHOLECALCIFEROL
     Dosage: 1 DOSAGE FORM, QD
     Dates: start: 20180802
  8. RAMIPRIL. [Concomitant]
     Active Substance: RAMIPRIL
     Indication: HYPERTENSION
     Dosage: 1 DOSAGE FORM, QD
     Dates: start: 20180802
  9. TILDIEM [Concomitant]
     Active Substance: DILTIAZEM HYDROCHLORIDE
     Dosage: AS DIRECTED
     Dates: start: 20180802
  10. MORPHINE SULFATE. [Concomitant]
     Active Substance: MORPHINE SULFATE
     Dosage: 2.5ML/5MG EVERY 4 FOUR HOURS
     Dates: start: 20181030, end: 20181127
  11. PRAVASTATIN. [Concomitant]
     Active Substance: PRAVASTATIN
     Indication: BLOOD CHOLESTEROL INCREASED
     Dosage: 1 DOSAGE FORM, QD, NIGHT
     Dates: start: 20180802
  12. OMEPRAZOLE. [Concomitant]
     Active Substance: OMEPRAZOLE
     Dosage: 1 DOSAGE FORM, QD
     Dates: start: 20180802
  13. FOSTAIR [Concomitant]
     Active Substance: BECLOMETHASONE\FORMOTEROL
     Dosage: ONE TO TWO PUFFS TWICE DAILY
     Dates: start: 20180913
  14. SALAMOL                            /00139501/ [Concomitant]
     Dosage: 2 DOSAGE FORM, PRN
     Route: 055
     Dates: start: 20180802
  15. BENDROFLUMETHIAZIDE [Concomitant]
     Active Substance: BENDROFLUMETHIAZIDE
     Indication: HYPERTENSION
     Dosage: 1 DOSAGE FORM, QD,EVERY MORNING
     Dates: start: 20180802
  16. COCODAMOL [Concomitant]
     Active Substance: ACETAMINOPHEN\CODEINE PHOSPHATE
     Dosage: 8 DOSAGE FORM, QD
     Dates: start: 20180802

REACTIONS (2)
  - Lower urinary tract symptoms [Unknown]
  - Cystitis [Unknown]

NARRATIVE: CASE EVENT DATE: 20181217
